FAERS Safety Report 21812090 (Version 1)
Quarter: 2023Q1

REPORT INFORMATION
  Report Type: Spontaneous
  Country: DK (occurrence: DK)
  Receive Date: 20230103
  Receipt Date: 20230103
  Transmission Date: 20230417
  Serious: Yes (Hospitalization)
  Sender: FDA-Public Use
  Company Number: None

PATIENT
  Age: 56 Year
  Sex: Male

DRUGS (2)
  1. CITALOPRAM [Suspect]
     Active Substance: CITALOPRAM HYDROBROMIDE
     Indication: Depressive symptom
     Dosage: INCREASE FROM 20MG DAILY-AN UNK DOSE ON 30OCT2019
     Route: 065
     Dates: start: 2017, end: 202008
  2. CITALOPRAM HYDROBROMIDE [Suspect]
     Active Substance: CITALOPRAM HYDROBROMIDE
     Indication: Depressive symptom
     Dosage: DOSAGE BETWEEN 20-40 MG DAILY, STRENGTH: UNK
     Route: 065
     Dates: start: 1993, end: 2015

REACTIONS (6)
  - Libido increased [Unknown]
  - Bipolar disorder [Unknown]
  - Insomnia [Unknown]
  - Suicidal ideation [Unknown]
  - Depressive symptom [Unknown]
  - Anger [Unknown]

NARRATIVE: CASE EVENT DATE: 20200101
